FAERS Safety Report 12563853 (Version 1)
Quarter: 2016Q3

REPORT INFORMATION
  Report Type: Spontaneous
  Country: US (occurrence: US)
  Receive Date: 20160716
  Receipt Date: 20160716
  Transmission Date: 20161109
  Serious: Yes (Hospitalization)
  Sender: FDA-Public Use
  Company Number: US-AUROBINDO-AUR-APL-2016-08926

PATIENT

DRUGS (3)
  1. BACLOFEN. [Suspect]
     Active Substance: BACLOFEN
     Indication: MYOCLONUS
     Dosage: 5 MG, 3 TIMES A DAY
     Route: 048
  2. BACLOFEN. [Suspect]
     Active Substance: BACLOFEN
     Dosage: 5 MG, 3 TIMES A DAY
     Route: 048
  3. GABAPENTIN 300MG [Suspect]
     Active Substance: GABAPENTIN
     Indication: PRODUCT USED FOR UNKNOWN INDICATION
     Dosage: 300 MG, DAILY
     Route: 065

REACTIONS (3)
  - Respiratory failure [Unknown]
  - Generalised tonic-clonic seizure [Unknown]
  - Mental status changes [Recovering/Resolving]
